FAERS Safety Report 8564288-8 (Version None)
Quarter: 2012Q3

REPORT INFORMATION
  Report Type: 
  Country: None (occurrence: None)
  Receive Date: 20120803
  Receipt Date: 20120725
  Transmission Date: 20120928
  Serious: Yes (Hospitalization)
  Sender: FDA-Public Use
  Company Number: US-JNJFOC-20120713227

PATIENT

DRUGS (2)
  1. INVEGA SUSTENNA [Suspect]
     Indication: PRODUCT USED FOR UNKNOWN INDICATION
     Route: 030
     Dates: start: 20120710
  2. INVEGA SUSTENNA [Suspect]
     Dosage: 234 MG/156 MG INITIATION DOSES
     Route: 030

REACTIONS (3)
  - HALLUCINATIONS, MIXED [None]
  - AGGRESSION [None]
  - UNDERDOSE [None]
